FAERS Safety Report 20319089 (Version 10)
Quarter: 2022Q3

REPORT INFORMATION
  Report Type: Report from Study
  Country: US (occurrence: US)
  Receive Date: 20220110
  Receipt Date: 20220721
  Transmission Date: 20221027
  Serious: Yes (Hospitalization, Other)
  Sender: FDA-Public Use
  Company Number: US-NOVARTISPH-NVSC2022US003947

PATIENT
  Age: 68 Year
  Sex: Female

DRUGS (4)
  1. ENTRESTO [Suspect]
     Active Substance: SACUBITRIL\VALSARTAN
     Indication: Cardiac failure chronic
     Dosage: 1 DOSAGE FORM, BID (DISPERSIBLE TABLET)
     Route: 048
  2. ENTRESTO [Suspect]
     Active Substance: SACUBITRIL\VALSARTAN
     Dosage: UNK
     Route: 065
  3. SPIRONOLACTONE [Concomitant]
     Active Substance: SPIRONOLACTONE
     Indication: Product used for unknown indication
     Dosage: UNK
     Route: 065
  4. JARDIANCE [Concomitant]
     Active Substance: EMPAGLIFLOZIN
     Indication: Product used for unknown indication
     Dosage: UNK
     Route: 065

REACTIONS (22)
  - Hypersensitivity [Unknown]
  - Cardiac failure [Unknown]
  - Blood glucose increased [Unknown]
  - Peripheral swelling [Unknown]
  - Dyspnoea [Not Recovered/Not Resolved]
  - Arthralgia [Unknown]
  - Localised infection [Unknown]
  - Pain in extremity [Unknown]
  - Somnolence [Unknown]
  - Joint swelling [Unknown]
  - Balance disorder [Recovering/Resolving]
  - Dysphagia [Unknown]
  - Hypertension [Unknown]
  - Atrioventricular block [Unknown]
  - Malaise [Unknown]
  - Lymphoedema [Unknown]
  - Weight decreased [Unknown]
  - Anaemia [Unknown]
  - Nausea [Recovering/Resolving]
  - Fatigue [Unknown]
  - Blood pressure decreased [Unknown]
  - Product use complaint [Unknown]

NARRATIVE: CASE EVENT DATE: 20220309
